FAERS Safety Report 20568174 (Version 1)
Quarter: 2022Q1

REPORT INFORMATION
  Report Type: Spontaneous
  Country: US (occurrence: US)
  Receive Date: 20220308
  Receipt Date: 20220308
  Transmission Date: 20220424
  Serious: Yes (Other)
  Sender: FDA-Public Use
  Company Number: US-PURDUE-USA-2020-0207267

PATIENT
  Sex: Male

DRUGS (2)
  1. OXYCODONE HYDROCHLORIDE [Suspect]
     Active Substance: OXYCODONE HYDROCHLORIDE
     Indication: Back pain
     Dosage: UNKNOWN
     Route: 048
  2. HYDROCODONE BITARTRATE AND ACETAMINOPHEN [Suspect]
     Active Substance: ACETAMINOPHEN\HYDROCODONE BITARTRATE
     Indication: Back pain
     Dosage: UNKNOWN
     Route: 048

REACTIONS (9)
  - Drug dependence [Unknown]
  - Hyperhidrosis [Unknown]
  - Chills [Unknown]
  - Mood altered [Unknown]
  - Disturbance in attention [Unknown]
  - Feelings of worthlessness [None]
  - Mental disorder [Unknown]
  - Fear [Unknown]
  - Pain [Unknown]
